FAERS Safety Report 4727584-8 (Version None)
Quarter: 2005Q3

REPORT INFORMATION
  Report Type: 
  Country: None (occurrence: None)
  Receive Date: 20050728
  Receipt Date: 20050714
  Transmission Date: 20060218
  Serious: Yes (Hospitalization)
  Sender: FDA-Public Use
  Company Number: 200516393GDDC

PATIENT
  Age: 55 Year
  Sex: Female

DRUGS (3)
  1. DOCETAXEL [Suspect]
     Indication: BREAST CANCER
     Route: 042
     Dates: start: 20050704, end: 20050704
  2. CAPECITABINE [Suspect]
     Indication: BREAST CANCER
     Dosage: DOSE: 1500 + 1500
     Route: 048
     Dates: start: 20050704
  3. METOCLOPRAMIDE [Concomitant]

REACTIONS (5)
  - DYSGRAPHIA [None]
  - DYSPHASIA [None]
  - ENCEPHALOPATHY [None]
  - FEELING ABNORMAL [None]
  - PARESIS [None]
